FAERS Safety Report 5504253-8 (Version None)
Quarter: 2007Q4

REPORT INFORMATION
  Report Type: 
  Country: None (occurrence: None)
  Receive Date: 20071101
  Receipt Date: 20071023
  Transmission Date: 20080405
  Serious: Yes (Other)
  Sender: FDA-Public Use
  Company Number: JP-GILEAD-2007-0013965

PATIENT
  Sex: Male

DRUGS (9)
  1. HEPSERA [Suspect]
     Indication: HEPATIC CIRRHOSIS
     Route: 048
     Dates: start: 20031122
  2. LAMIVUDINE [Concomitant]
     Dates: start: 20020718
  3. URSODIOL [Concomitant]
  4. PROHEPARUM [Concomitant]
  5. PROTEIN SUPPLEMENT [Concomitant]
  6. MENATETRENONE [Concomitant]
  7. ROXATIDINE ACETATE HCL [Concomitant]
  8. SPIRONOLACTONE [Concomitant]
  9. AMMONIUM GLYCYRRHIZATE [Concomitant]

REACTIONS (1)
  - RENAL IMPAIRMENT [None]
